FAERS Safety Report 4860799-7 (Version None)
Quarter: 2005Q4

REPORT INFORMATION
  Report Type: 
  Country: None (occurrence: None)
  Receive Date: 20051216
  Receipt Date: 20051216
  Transmission Date: 20060501
  Serious: Yes (Death)
  Sender: FDA-Public Use
  Company Number: None

PATIENT
  Age: 64 Year
  Sex: Female

DRUGS (3)
  1. COUMADIN [Suspect]
     Indication: ATRIAL FIBRILLATION
     Dosage: PO   (DATES OF USE:  CHRONIC)
     Route: 048
  2. COUMADIN [Suspect]
     Indication: DEEP VEIN THROMBOSIS
     Dosage: PO   (DATES OF USE:  CHRONIC)
     Route: 048
  3. PLAVIX [Suspect]
     Dosage: 75 MG  DAILY  PO   (DATES OF USE: CHRONIC)
     Route: 048

REACTIONS (3)
  - BRAIN HERNIATION [None]
  - CONVULSION [None]
  - HAEMORRHAGE INTRACRANIAL [None]
